FAERS Safety Report 18079513 (Version 1)
Quarter: 2020Q3

REPORT INFORMATION
  Report Type: Spontaneous
  Country: PL (occurrence: PL)
  Receive Date: 20200728
  Receipt Date: 20200728
  Transmission Date: 20201103
  Serious: Yes (Other)
  Sender: FDA-Public Use
  Company Number: PL-TEVA-2020-PL-1805556

PATIENT
  Age: 66 Year
  Sex: Male
  Weight: 82.5 kg

DRUGS (7)
  1. CORHYDRON 100 MG [Concomitant]
     Active Substance: HYDROCORTISONE SODIUM SUCCINATE
     Dosage: 400 MG
     Route: 042
     Dates: start: 20180410
  2. 5?FLUOROURACIL [Suspect]
     Active Substance: FLUOROURACIL
     Indication: RECTAL CANCER
  3. METOCLOPRAMID 10 MG [Concomitant]
     Dosage: 30 MG
     Route: 042
     Dates: start: 20180410
  4. 5?FLUOROURACIL [Suspect]
     Active Substance: FLUOROURACIL
     Indication: HEPATIC NEOPLASM
     Dosage: 2000 MG
     Route: 042
     Dates: start: 20180410
  5. ONDANSETRON. [Concomitant]
     Active Substance: ONDANSETRON
     Dosage: 8 MG
     Route: 042
     Dates: start: 20180410
  6. CLEMASTINE [Concomitant]
     Active Substance: CLEMASTINE
     Dosage: 6 MG
     Route: 042
     Dates: start: 20180410
  7. LEUCOVORIN CALCIUM. [Concomitant]
     Active Substance: LEUCOVORIN CALCIUM
     Dosage: 400 MG
     Route: 042
     Dates: start: 20180410

REACTIONS (2)
  - Rash pruritic [Recovering/Resolving]
  - Face oedema [Recovering/Resolving]

NARRATIVE: CASE EVENT DATE: 20180411
